FAERS Safety Report 25520601 (Version 1)
Quarter: 2025Q3

REPORT INFORMATION
  Report Type: Spontaneous
  Country: OM (occurrence: OM)
  Receive Date: 20250705
  Receipt Date: 20250705
  Transmission Date: 20251021
  Serious: Yes (Other)
  Sender: ACCORD
  Company Number: OM-MLMSERVICE-20250616-PI544299-00101-1

PATIENT
  Age: 45 Year
  Sex: Male

DRUGS (6)
  1. CISPLATIN [Suspect]
     Active Substance: CISPLATIN
     Indication: Metastatic squamous cell carcinoma
  2. FLUOROURACIL [Suspect]
     Active Substance: FLUOROURACIL
     Indication: Metastatic squamous cell carcinoma
  3. CISPLATIN [Suspect]
     Active Substance: CISPLATIN
     Indication: Renal cell carcinoma
  4. FLUOROURACIL [Suspect]
     Active Substance: FLUOROURACIL
     Indication: Renal cell carcinoma
  5. FLUOROURACIL [Suspect]
     Active Substance: FLUOROURACIL
     Indication: Metastases to lymph nodes
  6. CISPLATIN [Suspect]
     Active Substance: CISPLATIN
     Indication: Metastases to lymph nodes

REACTIONS (2)
  - Gastrointestinal toxicity [Unknown]
  - Febrile neutropenia [Unknown]
